FAERS Safety Report 20921024 (Version 1)
Quarter: 2022Q2

REPORT INFORMATION
  Report Type: Spontaneous
  Country: US (occurrence: US)
  Receive Date: 20220606
  Receipt Date: 20220606
  Transmission Date: 20220720
  Serious: No
  Sender: FDA-Public Use
  Company Number: US-TAKEDA-2022TUS037156

PATIENT
  Sex: Female
  Weight: 53 kg

DRUGS (1)
  1. LIVTENCITY [Suspect]
     Active Substance: MARIBAVIR
     Indication: Cytomegalovirus infection
     Dosage: 200 MILLIGRAM, QD
     Route: 048
     Dates: start: 20220214

REACTIONS (2)
  - Therapy cessation [Unknown]
  - Product selection error [Unknown]
